FAERS Safety Report 8588223-1 (Version None)
Quarter: 2012Q3

REPORT INFORMATION
  Report Type: 
  Country: None (occurrence: None)
  Receive Date: 20120803
  Receipt Date: 20120803
  Transmission Date: 20120928
  Serious: Yes (Other)
  Sender: FDA-Public Use
  Company Number: None

PATIENT
  Sex: Female
  Weight: 72.5755 kg

DRUGS (1)
  1. LEVAQUIN [Suspect]
     Indication: SINUSITIS
     Dosage: 500MG DAILY PO
     Route: 048
     Dates: start: 20120329, end: 20120409

REACTIONS (5)
  - PAIN [None]
  - MUSCLE SPASMS [None]
  - TENDONITIS [None]
  - MUSCLE FATIGUE [None]
  - HEADACHE [None]
